FAERS Safety Report 8213689-6 (Version None)
Quarter: 2012Q1

REPORT INFORMATION
  Report Type: 
  Country: None (occurrence: None)
  Receive Date: 20120315
  Receipt Date: 20120306
  Transmission Date: 20120608
  Serious: Yes (Other)
  Sender: FDA-Public Use
  Company Number: US-ASTRAZENECA-2010SE46369

PATIENT
  Age: 58 Year
  Sex: Female

DRUGS (3)
  1. NEXIUM [Suspect]
     Dosage: TWO TIMES A DAY
     Route: 048
  2. PREVACID [Concomitant]
     Dosage: TWICE A DAY
  3. NEXIUM [Suspect]
     Route: 048

REACTIONS (6)
  - ABDOMINAL PAIN UPPER [None]
  - LEUKAEMIA [None]
  - GASTROOESOPHAGEAL REFLUX DISEASE [None]
  - OESOPHAGEAL DISORDER [None]
  - DRUG DOSE OMISSION [None]
  - OESOPHAGEAL PAIN [None]
